FAERS Safety Report 20027791 (Version 1)
Quarter: 2021Q4

REPORT INFORMATION
  Report Type: Spontaneous
  Country: US (occurrence: US)
  Receive Date: 20211103
  Receipt Date: 20211103
  Transmission Date: 20220303
  Serious: No
  Sender: FDA-Public Use
  Company Number: US-ELI_LILLY_AND_COMPANY-US202111000888

PATIENT
  Sex: Female

DRUGS (1)
  1. FORTEO [Suspect]
     Active Substance: TERIPARATIDE
     Indication: Product used for unknown indication
     Dosage: UNK UNK, DAILY
     Route: 065
     Dates: start: 202108

REACTIONS (7)
  - Rash [Unknown]
  - Psoriasis [Recovering/Resolving]
  - Eye disorder [Unknown]
  - Arthralgia [Recovering/Resolving]
  - Blister [Unknown]
  - Back pain [Recovering/Resolving]
  - Nausea [Unknown]
